FAERS Safety Report 6758141-X (Version None)
Quarter: 2010Q2

REPORT INFORMATION
  Report Type: 
  Country: None (occurrence: None)
  Receive Date: 20100607
  Receipt Date: 20100526
  Transmission Date: 20101027
  Serious: Yes (Death)
  Sender: FDA-Public Use
  Company Number: US-BAXTER-2005BH003546

PATIENT
  Sex: Male

DRUGS (6)
  1. HEMOFIL [Suspect]
     Indication: HAEMOPHILIA
     Route: 042
  2. PROPLEX T [Suspect]
     Indication: HAEMOPHILIA
     Route: 042
  3. ANTIHEMOPHILIC FACTOR (HUMAN) [Suspect]
     Indication: FACTOR VIII DEFICIENCY
     Route: 065
  4. KRYOBULIN, UNSPECIFIED [Suspect]
     Indication: FACTOR VIII DEFICIENCY
     Route: 065
  5. BEBULIN [Suspect]
     Indication: FACTOR VIII DEFICIENCY
     Route: 065
  6. PROTHROMPLEX S-TIM 4 [Suspect]
     Indication: FACTOR VIII DEFICIENCY
     Route: 065

REACTIONS (2)
  - HEPATITIS C [None]
  - HIV INFECTION [None]
